FAERS Safety Report 10190812 (Version 1)
Quarter: 2014Q2

REPORT INFORMATION
  Report Type: Report from Study
  Country: US (occurrence: US)
  Receive Date: 20140523
  Receipt Date: 20140523
  Transmission Date: 20141212
  Serious: Yes (Hospitalization)
  Sender: FDA-Public Use
  Company Number: PHEH2014US010400

PATIENT
  Sex: Female

DRUGS (2)
  1. GILENYA [Suspect]
     Indication: MULTIPLE SCLEROSIS
     Dosage: 0.5 MG, QD
     Route: 048
  2. AMPYRA [Concomitant]

REACTIONS (4)
  - Generalised tonic-clonic seizure [Unknown]
  - Fall [Unknown]
  - Head injury [Unknown]
  - Concussion [Unknown]
